FAERS Safety Report 20721203 (Version 1)
Quarter: 2022Q2

REPORT INFORMATION
  Report Type: Report from Study
  Country: US (occurrence: US)
  Receive Date: 20220418
  Receipt Date: 20220418
  Transmission Date: 20220721
  Serious: Yes (Other)
  Sender: FDA-Public Use
  Company Number: US-OTSUKA-2022_002794

PATIENT
  Age: 85 Year
  Sex: Male

DRUGS (1)
  1. CEDAZURIDINE\DECITABINE [Suspect]
     Active Substance: CEDAZURIDINE\DECITABINE
     Indication: Myelodysplastic syndrome
     Dosage: 1 DF (35MG-100MG), QD (BY MOUTH ONCE DAILY FOR 4 DAYS ON AND 24 DAYS OFF FOR A 28 DAY CYCLE)
     Route: 048

REACTIONS (6)
  - Eye haematoma [Recovering/Resolving]
  - Movement disorder [Recovering/Resolving]
  - Platelet count decreased [Unknown]
  - Full blood count abnormal [Unknown]
  - Decreased appetite [Unknown]
  - Fatigue [Unknown]

NARRATIVE: CASE EVENT DATE: 20200322
